FAERS Safety Report 6573574-2 (Version None)
Quarter: 2010Q1

REPORT INFORMATION
  Report Type: 
  Country: None (occurrence: None)
  Receive Date: 20100208
  Receipt Date: 20100202
  Transmission Date: 20100710
  Serious: Yes (Hospitalization)
  Sender: FDA-Public Use
  Company Number: IE-ROCHE-671252

PATIENT
  Sex: Female
  Weight: 68.5 kg

DRUGS (10)
  1. BEVACIZUMAB [Suspect]
     Indication: BREAST CANCER
     Dosage: MOST RECENT DOSE: 19 NOVEMBER 2009, FREQUENCY NOT REPORTED.
     Route: 042
     Dates: start: 20090716
  2. BEVACIZUMAB [Suspect]
     Dosage: CYCLE 8.
     Route: 042
     Dates: end: 20091210
  3. BEVACIZUMAB [Suspect]
     Dosage: CYCLE 9
     Route: 042
     Dates: end: 20091231
  4. BEVACIZUMAB [Suspect]
     Dosage: CYCLE 10
     Route: 042
     Dates: end: 20100121
  5. DOCETAXEL [Suspect]
     Indication: BREAST CANCER
     Route: 042
     Dates: start: 20090716
  6. EMCOR [Suspect]
     Indication: DRUG USE FOR UNKNOWN INDICATION
     Route: 048
     Dates: start: 20050101
  7. ARIMIDEX [Suspect]
     Indication: DRUG USE FOR UNKNOWN INDICATION
     Route: 048
     Dates: start: 20091008
  8. PIRITON [Concomitant]
     Route: 048
     Dates: start: 20090910
  9. LIPITOR [Concomitant]
     Route: 048
     Dates: start: 20070101
  10. IDEOS [Concomitant]
     Dosage: DOSE NOT LEGIBLE
     Route: 048
     Dates: start: 20040101

REACTIONS (2)
  - CELLULITIS [None]
  - LYMPHOEDEMA [None]
